FAERS Safety Report 14863265 (Version 1)
Quarter: 2018Q2

REPORT INFORMATION
  Report Type: Spontaneous
  Country: US (occurrence: US)
  Receive Date: 20180508
  Receipt Date: 20180508
  Transmission Date: 20180711
  Serious: No
  Sender: FDA-Public Use
  Company Number: US-ALKERMES INC.-ALK-2017-002559

PATIENT
  Age: 58 Year
  Sex: Male
  Weight: 72.56 kg

DRUGS (3)
  1. AFRIN [Concomitant]
     Active Substance: OXYMETAZOLINE
     Indication: PRODUCT USED FOR UNKNOWN INDICATION
     Dosage: UNK
  2. VIVITROL [Suspect]
     Active Substance: NALTREXONE
     Indication: DRUG DEPENDENCE
     Dosage: 380 MG, QMO
     Route: 030
     Dates: start: 20170606
  3. FLUTICASONE. [Suspect]
     Active Substance: FLUTICASONE
     Indication: ALLERGIC SINUSITIS
     Dosage: UNK
     Dates: start: 201706, end: 201706

REACTIONS (11)
  - Fatigue [Recovering/Resolving]
  - Insomnia [Recovering/Resolving]
  - Allergic sinusitis [Unknown]
  - Muscle fatigue [Recovering/Resolving]
  - Drug dependence [Not Recovered/Not Resolved]
  - Reflux gastritis [Recovered/Resolved]
  - Abdominal pain [Unknown]
  - Stress [Recovering/Resolving]
  - Prostatic disorder [Unknown]
  - Lethargy [Recovering/Resolving]
  - Headache [Recovering/Resolving]

NARRATIVE: CASE EVENT DATE: 201706
